FAERS Safety Report 5393831-5 (Version None)
Quarter: 2007Q3

REPORT INFORMATION
  Report Type: 
  Country: None (occurrence: None)
  Receive Date: 20070719
  Receipt Date: 20070719
  Transmission Date: 20080115
  Serious: Yes (Other)
  Sender: FDA-Public Use
  Company Number: None

PATIENT
  Age: 35 Year
  Sex: Female
  Weight: 63.5036 kg

DRUGS (2)
  1. PHENTERMINE [Suspect]
     Indication: WEIGHT CONTROL
     Dosage: 37.5 MG 2 X DAILY PO
     Route: 048
     Dates: start: 19920929, end: 19921229
  2. PHENTERMINE [Suspect]
     Indication: WEIGHT CONTROL
     Dosage: 37.5 MG 2 X DAILY PO
     Route: 048
     Dates: start: 20070715, end: 20070719

REACTIONS (2)
  - EYE DISCHARGE [None]
  - EYE IRRITATION [None]
